FAERS Safety Report 10575087 (Version 1)
Quarter: 2014Q4

REPORT INFORMATION
  Report Type: Spontaneous
  Country: US (occurrence: US)
  Receive Date: 20141111
  Receipt Date: 20141111
  Transmission Date: 20150529
  Serious: No
  Sender: FDA-Public Use
  Company Number: US-LEO PHARMA-230548

PATIENT
  Sex: Female

DRUGS (1)
  1. PICATO [Suspect]
     Active Substance: INGENOL MEBUTATE
     Indication: PRECANCEROUS SKIN LESION
     Route: 061
     Dates: start: 20141018, end: 20141020

REACTIONS (5)
  - Erythema [Recovering/Resolving]
  - Incorrect dose administered [Unknown]
  - Application site swelling [Recovering/Resolving]
  - Application site pain [Recovering/Resolving]
  - Application site exfoliation [Recovering/Resolving]
